FAERS Safety Report 7101948-X (Version None)
Quarter: 2010Q4

REPORT INFORMATION
  Report Type: 
  Country: None (occurrence: None)
  Receive Date: 20101115
  Receipt Date: 20101105
  Transmission Date: 20110411
  Serious: Yes (Hospitalization)
  Sender: FDA-Public Use
  Company Number: GB-MPIJNJ-2010-05311

PATIENT

DRUGS (5)
  1. VELCADE [Suspect]
     Indication: MULTIPLE MYELOMA
     Dosage: 2.5 MG, UNK
     Route: 042
     Dates: start: 20100823, end: 20101011
  2. DEXAMETHASONE [Concomitant]
     Indication: MULTIPLE MYELOMA
     Dosage: 40 MG, UNK
     Dates: start: 20100828
  3. DOXORUBICIN HCL [Concomitant]
     Indication: MULTIPLE MYELOMA
     Dosage: 70 MG, UNK
     Dates: start: 20100823, end: 20101004
  4. DOMPERIDONE [Concomitant]
     Indication: NAUSEA
     Dosage: 20 MG, UNK
     Dates: start: 20100823
  5. DOMPERIDONE [Concomitant]
     Indication: VOMITING

REACTIONS (1)
  - DRUG INEFFECTIVE [None]
